FAERS Safety Report 25216349 (Version 1)
Quarter: 2025Q2

REPORT INFORMATION
  Report Type: Spontaneous
  Country: US (occurrence: US)
  Receive Date: 20250418
  Receipt Date: 20250418
  Transmission Date: 20250717
  Serious: No
  Sender: ROCHE
  Company Number: US-ROCHE-10000256780

PATIENT
  Sex: Male

DRUGS (1)
  1. ERIVEDGE [Suspect]
     Active Substance: VISMODEGIB
     Indication: Basal cell carcinoma
     Dosage: STRENGTH: 150MG
     Route: 048
     Dates: start: 202503

REACTIONS (7)
  - Ageusia [Unknown]
  - Neck pain [Unknown]
  - Arthralgia [Unknown]
  - Weight decreased [Unknown]
  - Headache [Unknown]
  - Angiopathy [Unknown]
  - Loss of personal independence in daily activities [Unknown]
